FAERS Safety Report 17213559 (Version 1)
Quarter: 2019Q4

REPORT INFORMATION
  Report Type: Spontaneous
  Country: IT (occurrence: IT)
  Receive Date: 20191230
  Receipt Date: 20191230
  Transmission Date: 20200122
  Serious: Yes (Other)
  Sender: FDA-Public Use
  Company Number: IT-PFIZER INC-2019557335

PATIENT
  Age: 30 Year
  Sex: Male

DRUGS (1)
  1. PANTORC [Suspect]
     Active Substance: PANTOPRAZOLE SODIUM
     Dosage: UNK
     Route: 065

REACTIONS (2)
  - Dysphagia [Recovering/Resolving]
  - Oropharyngeal discomfort [Recovering/Resolving]

NARRATIVE: CASE EVENT DATE: 20190727
